FAERS Safety Report 4802226-1 (Version None)
Quarter: 2005Q4

REPORT INFORMATION
  Report Type: 
  Country: None (occurrence: None)
  Receive Date: 20051017
  Receipt Date: 20051017
  Transmission Date: 20060501
  Serious: Yes (Other)
  Sender: FDA-Public Use
  Company Number: None

PATIENT
  Age: 52 Year
  Sex: Female
  Weight: 110.2241 kg

DRUGS (2)
  1. SARAPIN -SARRACENIA - [Suspect]
     Indication: SCIATICA
     Dosage: 10 CC
     Dates: start: 20051010, end: 20051010
  2. ZYLOCAINE [Concomitant]

REACTIONS (2)
  - ASTHMA [None]
  - HYPERSENSITIVITY [None]
